FAERS Safety Report 9442896 (Version 1)
Quarter: 2013Q3

REPORT INFORMATION
  Report Type: Spontaneous
  Country: US (occurrence: None)
  Receive Date: 20130805
  Receipt Date: 20130805
  Transmission Date: 20140515
  Serious: Yes (Other)
  Sender: FDA-Public Use
  Company Number: None

PATIENT
  Age: 53 Year
  Sex: Male
  Weight: 100.7 kg

DRUGS (2)
  1. NORCO [Suspect]
     Indication: BACK PAIN
     Dosage: 1 2X DAILY PO
     Route: 048
     Dates: start: 20130723, end: 20130802
  2. NORCO [Suspect]
     Indication: NECK PAIN
     Dosage: 1 2X DAILY PO
     Route: 048
     Dates: start: 20130723, end: 20130802

REACTIONS (2)
  - Product formulation issue [None]
  - Inadequate analgesia [None]
